FAERS Safety Report 23583888 (Version 1)
Quarter: 2024Q1

REPORT INFORMATION
  Report Type: Spontaneous
  Country: US (occurrence: US)
  Receive Date: 20240301
  Receipt Date: 20240301
  Transmission Date: 20240410
  Serious: Yes (Hospitalization, Other)
  Sender: FDA-Public Use
  Company Number: US-NOVOPROD-1180628

PATIENT
  Age: 77 Year
  Sex: Female

DRUGS (1)
  1. NOVOLOG [Suspect]
     Active Substance: INSULIN ASPART
     Indication: Type 1 diabetes mellitus
     Dosage: UNK
     Route: 058
     Dates: start: 2000

REACTIONS (4)
  - Stent placement [Unknown]
  - Pneumonia [Unknown]
  - COVID-19 [Unknown]
  - Bronchitis [Unknown]

NARRATIVE: CASE EVENT DATE: 20230901
